FAERS Safety Report 23614021 (Version 1)
Quarter: 2024Q1

REPORT INFORMATION
  Report Type: Spontaneous
  Country: CN (occurrence: CN)
  Receive Date: 20240310
  Receipt Date: 20240310
  Transmission Date: 20240410
  Serious: Yes (Hospitalization)
  Sender: FDA-Public Use
  Company Number: CN-ABBVIE-5660991

PATIENT
  Age: 25 Year
  Sex: Male
  Weight: 95 kg

DRUGS (5)
  1. VENETOCLAX [Suspect]
     Active Substance: VENETOCLAX
     Indication: Neoplasm prophylaxis
     Dosage: 200 MILLIGRAM?DURATION TEXT: D2
     Route: 048
     Dates: start: 20240206, end: 20240206
  2. VENETOCLAX [Suspect]
     Active Substance: VENETOCLAX
     Indication: Neoplasm prophylaxis
     Dosage: 400 MILLIGRAM?400 MG D3-28?LAST ADMIN DATE-FEB 2024
     Route: 048
     Dates: start: 20240207
  3. VENETOCLAX [Suspect]
     Active Substance: VENETOCLAX
     Indication: Neoplasm prophylaxis
     Dosage: 100 MILLIGRAM?DURATION TEXT: D1
     Route: 048
     Dates: start: 20240205, end: 20240205
  4. OMACETAXINE MEPESUCCINATE [Suspect]
     Active Substance: OMACETAXINE MEPESUCCINATE
     Indication: Neoplasm prophylaxis
     Dosage: 2 MILLIGRAM?HOMOHARRINGTONINE INJECTION?2 MG QD IVGTT ON D1-14;?DURATION TEXT: D1-D14
     Route: 041
     Dates: start: 20240205, end: 20240218
  5. CYTARABINE [Suspect]
     Active Substance: CYTARABINE
     Indication: Neoplasm prophylaxis
     Dosage: 0.04 GRAM?CYTARABINE FOR INJECTION?0.02 G Q12H IVGTT ON D1-14, DURATION TEXT: D1-D14
     Route: 041
     Dates: start: 20240205, end: 20240218

REACTIONS (4)
  - Myelosuppression [Recovering/Resolving]
  - Pyrexia [Recovered/Resolved]
  - Agranulocytosis [Recovering/Resolving]
  - Off label use [Unknown]

NARRATIVE: CASE EVENT DATE: 20240221
